FAERS Safety Report 9728399 (Version 3)
Quarter: 2014Q1

REPORT INFORMATION
  Report Type: Spontaneous
  Country: GB (occurrence: GB)
  Receive Date: 20131204
  Receipt Date: 20140325
  Transmission Date: 20141002
  Serious: Yes (Disabling)
  Sender: FDA-Public Use
  Company Number: GB-PFIZER INC-2013294690

PATIENT
  Age: 35 Year
  Sex: Female
  Weight: 90 kg

DRUGS (5)
  1. LUSTRAL [Suspect]
     Indication: POSTPARTUM DEPRESSION
     Dosage: 50 MG, DAILY
     Route: 048
     Dates: start: 200902, end: 2013
  2. LUSTRAL [Suspect]
     Dosage: 75 MG, DAILY
     Route: 048
     Dates: start: 2013, end: 2013
  3. LUSTRAL [Suspect]
     Dosage: 50 MG, DAILY
     Dates: start: 2013, end: 2013
  4. CETIRIZINE [Concomitant]
     Indication: HYPERSENSITIVITY
     Dosage: 10 MG, UNK
     Route: 048
     Dates: start: 201301
  5. RANITIDINE [Concomitant]
     Indication: GASTRITIS
     Dosage: 150 MG, 2X/DAY
     Dates: start: 201108

REACTIONS (5)
  - Amnesia [Recovering/Resolving]
  - Speech disorder [Not Recovered/Not Resolved]
  - Learning disorder [Not Recovered/Not Resolved]
  - Emotional disorder [Unknown]
  - Drug effect decreased [Unknown]
